FAERS Safety Report 10192608 (Version 1)
Quarter: 2014Q2

REPORT INFORMATION
  Report Type: Spontaneous
  Country: US (occurrence: US)
  Receive Date: 20140523
  Receipt Date: 20140523
  Transmission Date: 20141212
  Serious: Yes (Other)
  Sender: FDA-Public Use
  Company Number: US-TEVA-483046USA

PATIENT
  Sex: Male

DRUGS (1)
  1. COPAXONE [Suspect]
     Indication: MULTIPLE SCLEROSIS
     Dates: start: 200007

REACTIONS (4)
  - Loss of consciousness [Recovered/Resolved]
  - Vasodilatation [Recovered/Resolved]
  - Stress [Unknown]
  - Injection site mass [Unknown]
